FAERS Safety Report 14272107 (Version 2)
Quarter: 2018Q2

REPORT INFORMATION
  Report Type: Spontaneous
  Country: US (occurrence: US)
  Receive Date: 20171211
  Receipt Date: 20180628
  Transmission Date: 20180711
  Serious: Yes (Hospitalization, Other)
  Sender: FDA-Public Use
  Company Number: US-OTSUKA-2017_021499

PATIENT

DRUGS (4)
  1. ABILIFY [Suspect]
     Active Substance: ARIPIPRAZOLE
     Indication: BIPOLAR DISORDER
  2. ABILIFY [Suspect]
     Active Substance: ARIPIPRAZOLE
     Indication: SCHIZOPHRENIA
     Dosage: UNK (5-15 MG)
     Route: 048
     Dates: start: 2013, end: 2013
  3. ABILIFY [Suspect]
     Active Substance: ARIPIPRAZOLE
     Indication: INSOMNIA
  4. ABILIFY [Suspect]
     Active Substance: ARIPIPRAZOLE
     Indication: PSYCHOTIC DISORDER

REACTIONS (15)
  - Hospitalisation [Unknown]
  - Injury [Unknown]
  - Obsessive-compulsive disorder [Recovered/Resolved]
  - Compulsive hoarding [Recovered/Resolved]
  - Brain injury [Unknown]
  - Suicidal ideation [Recovered/Resolved]
  - Sexually transmitted disease [Unknown]
  - Compulsive shopping [Recovered/Resolved]
  - Economic problem [Unknown]
  - Eating disorder [Recovered/Resolved]
  - Product use in unapproved indication [Unknown]
  - Suicide attempt [Recovered/Resolved]
  - Compulsive sexual behaviour [Unknown]
  - Gambling disorder [Unknown]
  - Pregnancy [Unknown]
